FAERS Safety Report 5151832-6 (Version None)
Quarter: 2006Q4

REPORT INFORMATION
  Report Type: 
  Country: None (occurrence: None)
  Receive Date: 20061107
  Receipt Date: 20061026
  Transmission Date: 20070319
  Serious: Yes (Other)
  Sender: FDA-Public Use
  Company Number: B0445159A

PATIENT

DRUGS (1)
  1. NICODERM CQ [Suspect]
     Indication: EX-SMOKER

REACTIONS (3)
  - INFECTION [None]
  - MULTI-ORGAN FAILURE [None]
  - SEPSIS [None]
